FAERS Safety Report 11225175 (Version 1)
Quarter: 2015Q2

REPORT INFORMATION
  Report Type: Spontaneous
  Country: PT (occurrence: PT)
  Receive Date: 20150629
  Receipt Date: 20150629
  Transmission Date: 20150821
  Serious: Yes (Hospitalization)
  Sender: FDA-Public Use
  Company Number: PT-FRESENIUS KABI-FK201502968

PATIENT
  Age: 9 Year
  Sex: Female

DRUGS (7)
  1. ENDOVENOUS GANCICLOVIR [Concomitant]
     Indication: MYELITIS TRANSVERSE
     Route: 065
  2. VALACICLOVIR [Concomitant]
     Active Substance: VALACYCLOVIR HYDROCHLORIDE
     Indication: MYELITIS TRANSVERSE
     Route: 048
  3. CEFTRIAXONE. [Concomitant]
     Active Substance: CEFTRIAXONE
     Indication: PRODUCT USED FOR UNKNOWN INDICATION
     Route: 065
  4. CIPROFLOXACIN. [Concomitant]
     Active Substance: CIPROFLOXACIN
     Indication: PRODUCT USED FOR UNKNOWN INDICATION
     Route: 065
  5. ACYCLOVIR SODIUM (MANUFACTURER UNKNOWN) (ACYCLOVIR SODIUM) (ACYCLOVIR SODIUM) [Suspect]
     Active Substance: ACYCLOVIR SODIUM
     Indication: PLEOCYTOSIS
     Route: 065
  6. IMMUNOGLOBULIN [Concomitant]
     Active Substance: HUMAN IMMUNOGLOBULIN G
     Indication: MYELITIS TRANSVERSE
     Route: 059
  7. VANCOMYCIN (MANUFACTURER UNKNOWN) [Suspect]
     Active Substance: VANCOMYCIN
     Indication: PLEOCYTOSIS
     Route: 065

REACTIONS (2)
  - Off label use [Recovering/Resolving]
  - Epstein-Barr virus infection [Recovering/Resolving]
